FAERS Safety Report 10915939 (Version 1)
Quarter: 2015Q1

REPORT INFORMATION
  Report Type: Spontaneous
  Country: US (occurrence: None)
  Receive Date: 20150311
  Receipt Date: 20150311
  Transmission Date: 20150721
  Serious: Yes (Other)
  Sender: FDA-Public Use
  Company Number: None

PATIENT
  Age: 08 Year
  Sex: Male
  Weight: 40.37 kg

DRUGS (1)
  1. INTUNIV [Suspect]
     Active Substance: GUANFACINE HYDROCHLORIDE
     Indication: ATTENTION DEFICIT/HYPERACTIVITY DISORDER
     Route: 048
     Dates: start: 201501

REACTIONS (4)
  - Mood swings [None]
  - Insomnia [None]
  - Educational problem [None]
  - Disturbance in attention [None]

NARRATIVE: CASE EVENT DATE: 201501
